FAERS Safety Report 7872756-7 (Version None)
Quarter: 2011Q4

REPORT INFORMATION
  Report Type: 
  Country: None (occurrence: None)
  Receive Date: 20111030
  Receipt Date: 20110422
  Transmission Date: 20120403
  Serious: No
  Sender: FDA-Public Use
  Company Number: US-AMGEN-USASP2011013835

PATIENT
  Age: 57 Year
  Sex: Male
  Weight: 77.551 kg

DRUGS (8)
  1. NORVASC [Concomitant]
     Dosage: UNK
  2. LORCET-HD [Concomitant]
  3. PLAQUENIL [Concomitant]
     Dosage: 200 MG, BID
  4. FOLIC ACID [Concomitant]
     Dosage: 1 MG, UNK
  5. ENBREL [Suspect]
     Indication: RHEUMATOID ARTHRITIS
     Dosage: 50 MG, QWK
     Dates: start: 20101208
  6. METHOTREXATE [Concomitant]
  7. PREDNISONE [Concomitant]
     Dosage: 10 MG, UNK
  8. LORCET-HD [Concomitant]

REACTIONS (6)
  - JOINT SWELLING [None]
  - HYPERTENSION [None]
  - RHEUMATOID ARTHRITIS [None]
  - FATIGUE [None]
  - ARTHRALGIA [None]
  - DYSSTASIA [None]
